FAERS Safety Report 19146577 (Version 1)
Quarter: 2021Q2

REPORT INFORMATION
  Report Type: Spontaneous
  Country: US (occurrence: US)
  Receive Date: 20210416
  Receipt Date: 20210416
  Transmission Date: 20210717
  Serious: Yes (Hospitalization, Other)
  Sender: FDA-Public Use
  Company Number: US-JNJFOC-20210426376

PATIENT
  Age: 41 Year
  Sex: Female

DRUGS (12)
  1. NOREPINEPHRINE. [Concomitant]
     Active Substance: NOREPINEPHRINE
  2. VANCOMYCIN [Concomitant]
     Active Substance: VANCOMYCIN
  3. FLUCONAZOLE. [Concomitant]
     Active Substance: FLUCONAZOLE
  4. CLINDAMYCIN. [Concomitant]
     Active Substance: CLINDAMYCIN
  5. ANGIOTENSIN 2 (HUMAN) [Concomitant]
  6. CEFEPIME [Concomitant]
     Active Substance: CEFEPIME HYDROCHLORIDE
  7. VASOPRESSIN. [Concomitant]
     Active Substance: VASOPRESSIN
  8. EPOPROSTENOL SODIUM. [Suspect]
     Active Substance: EPOPROSTENOL SODIUM
     Indication: ACUTE RESPIRATORY DISTRESS SYNDROME
     Route: 065
  9. AMPICILLIN [Concomitant]
     Active Substance: AMPICILLIN
  10. EPINEPHRINE. [Concomitant]
     Active Substance: EPINEPHRINE
  11. DOPAMINE [Concomitant]
     Active Substance: DOPAMINE HYDROCHLORIDE
  12. ACYCLOVIR [ACICLOVIR] [Concomitant]
     Active Substance: ACYCLOVIR

REACTIONS (8)
  - Leg amputation [Unknown]
  - Deep vein thrombosis [Unknown]
  - Limb amputation [Unknown]
  - Renal infarct [Unknown]
  - Amputation [Unknown]
  - Off label use [Unknown]
  - Product use in unapproved indication [Unknown]
  - Splenic infarction [Unknown]
